FAERS Safety Report 24175052 (Version 1)
Quarter: 2024Q3

REPORT INFORMATION
  Report Type: Spontaneous
  Country: US (occurrence: US)
  Receive Date: 20240805
  Receipt Date: 20240805
  Transmission Date: 20241016
  Serious: Yes (Other)
  Sender: NOVARTIS
  Company Number: US-002147023-NVSC2024US154715

PATIENT
  Age: 48 Year
  Sex: Female

DRUGS (1)
  1. KESIMPTA [Suspect]
     Active Substance: OFATUMUMAB
     Indication: Relapsing-remitting multiple sclerosis
     Dosage: UNK
     Route: 065
     Dates: start: 2021

REACTIONS (8)
  - Apnoea [Unknown]
  - Brain fog [Unknown]
  - Memory impairment [Unknown]
  - Apathy [Unknown]
  - Asthenia [Unknown]
  - Poor quality sleep [Unknown]
  - Irritability [Unknown]
  - Night sweats [Unknown]
